FAERS Safety Report 16304880 (Version 3)
Quarter: 2020Q1

REPORT INFORMATION
  Report Type: Report from Study
  Country: JP (occurrence: JP)
  Receive Date: 20190513
  Receipt Date: 20200129
  Transmission Date: 20200409
  Serious: Yes (Hospitalization)
  Sender: FDA-Public Use
  Company Number: JP-EISAI MEDICAL RESEARCH-EC-2019-056112

PATIENT
  Age: 69 Year
  Sex: Female
  Weight: 39 kg

DRUGS (10)
  1. LENVIMA [Suspect]
     Active Substance: LENVATINIB
     Indication: HEPATOCELLULAR CARCINOMA
     Route: 048
     Dates: start: 20181218, end: 20181221
  2. LENVIMA [Suspect]
     Active Substance: LENVATINIB
     Dosage: 5 DAYS ON/2 DAYS OFF REGIMEN
     Route: 048
     Dates: start: 20191216
  3. AMINOLEBAN EN [Concomitant]
     Active Substance: UNSPECIFIED INGREDIENT
  4. RIFXIMA [Concomitant]
     Active Substance: RIFAXIMIN
  5. LENVIMA [Suspect]
     Active Substance: LENVATINIB
     Dosage: 5 DAYS ON/2 DAYS OFF REGIMEN
     Route: 048
     Dates: start: 20190611, end: 20190708
  6. LENVIMA [Suspect]
     Active Substance: LENVATINIB
     Dosage: 5 DAYS ON/2 DAYS OFF REGIMEN
     Route: 048
     Dates: start: 20190821, end: 20191018
  7. LENVIMA [Suspect]
     Active Substance: LENVATINIB
     Route: 048
     Dates: start: 20181225, end: 20190219
  8. LENVIMA [Suspect]
     Active Substance: LENVATINIB
     Dosage: 5 DAYS ON/2 DAYS OFF REGIMEN
     Route: 048
     Dates: start: 20190225, end: 20190510
  9. LENVIMA [Suspect]
     Active Substance: LENVATINIB
     Dosage: 5 DAYS ON/2 DAYS OFF REGIMEN
     Route: 048
     Dates: start: 20191112, end: 20191209
  10. PIARLE [Concomitant]
     Active Substance: LACTULOSE

REACTIONS (3)
  - Diarrhoea [Recovered/Resolved]
  - Malaise [Not Recovered/Not Resolved]
  - Fatigue [Not Recovered/Not Resolved]

NARRATIVE: CASE EVENT DATE: 20181223
